FAERS Safety Report 8192650-4 (Version None)
Quarter: 2012Q1

REPORT INFORMATION
  Report Type: 
  Country: None (occurrence: None)
  Receive Date: 20120221
  Receipt Date: 20111123
  Transmission Date: 20120608
  Serious: No
  Sender: FDA-Public Use
  Company Number: 1000025788

PATIENT
  Sex: Male

DRUGS (2)
  1. VIIBRYD [Suspect]
     Dosage: 10 MG (10 MG,1 IN 1 D),ORAL  20 MG (20 MG, 1 IN 1 D),ORAL
     Route: 048
     Dates: start: 20111115, end: 20111121
  2. VIIBRYD [Suspect]
     Dosage: 10 MG (10 MG,1 IN 1 D),ORAL  20 MG (20 MG, 1 IN 1 D),ORAL
     Route: 048
     Dates: start: 20111122

REACTIONS (2)
  - DIARRHOEA [None]
  - NAUSEA [None]
